FAERS Safety Report 7919366 (Version 3)
Quarter: 2013Q2

REPORT INFORMATION
  Report Type: Report from Study
  Country: CZ (occurrence: CZ)
  Receive Date: 20110428
  Receipt Date: 20130612
  Transmission Date: 20140414
  Serious: Yes (Death, Disabling, Other)
  Sender: FDA-Public Use
  Company Number: CZ-BAYER-2011-035330

PATIENT
  Age: 64 Year
  Sex: Male

DRUGS (1)
  1. NEXAVAR [Suspect]
     Indication: RENAL CANCER
     Dosage: 800 MG, UNK
     Route: 048
     Dates: start: 20101019, end: 20101122

REACTIONS (4)
  - Renal cancer [Fatal]
  - Abasia [Unknown]
  - Deep vein thrombosis [Unknown]
  - Fatigue [None]
